FAERS Safety Report 19664767 (Version 1)
Quarter: 2021Q3

REPORT INFORMATION
  Report Type: Spontaneous
  Country: US (occurrence: US)
  Receive Date: 20210806
  Receipt Date: 20210806
  Transmission Date: 20211014
  Serious: No
  Sender: FDA-Public Use
  Company Number: US-PURDUE-USA-2021-0274187

PATIENT
  Sex: Female

DRUGS (1)
  1. BUPRENORPHINE TRANSDERMAL PATCH (SIMILAR TO NDA 21?306) [Suspect]
     Active Substance: BUPRENORPHINE
     Indication: PRODUCT USED FOR UNKNOWN INDICATION
     Dosage: 10 MCG/HR, WEEKLY
     Route: 062

REACTIONS (8)
  - Balance disorder [Unknown]
  - Application site inflammation [Unknown]
  - Application site burn [Unknown]
  - Application site vesicles [Unknown]
  - Dizziness [Unknown]
  - Application site swelling [Unknown]
  - Application site erythema [Unknown]
  - Application site pruritus [Unknown]
